FAERS Safety Report 10625141 (Version 1)
Quarter: 2014Q4

REPORT INFORMATION
  Report Type: Spontaneous
  Country: PL (occurrence: None)
  Receive Date: 20141203
  Receipt Date: 20141203
  Transmission Date: 20150529
  Serious: Yes (Hospitalization)
  Sender: FDA-Public Use
  Company Number: 2014DEPPL00612

PATIENT
  Age: 33 Year
  Sex: Female
  Weight: 47 kg

DRUGS (14)
  1. ETOPOSIDE (ETOPOSIDE PHOSPHATE) [Concomitant]
     Active Substance: ETOPOSIDE
  2. HEVIRAN (ACICLOVIR SODIUM) [Concomitant]
  3. MILURIT (ALLOPURINOL) [Concomitant]
  4. DEPOCYT(E) (CYTARABINE) LIPOSOME INJECTABLE SUSPENSION, MG [Suspect]
     Active Substance: CYTARABINE
     Indication: B-CELL TYPE ACUTE LEUKAEMIA
     Route: 037
     Dates: start: 20140717, end: 20140822
  5. CYTARABINE. [Concomitant]
     Active Substance: CYTARABINE
  6. DAUNORUBICIN [Concomitant]
     Active Substance: DAUNORUBICIN
  7. FLUCONAZOLE. [Concomitant]
     Active Substance: FLUCONAZOLE
  8. CYCLOPHOSPHAMIDE. [Concomitant]
     Active Substance: CYCLOPHOSPHAMIDE
  9. DEPOCYT(E) (CYTARABINE) LIPOSOME INJECTABLE SUSPENSION, MG [Suspect]
     Active Substance: CYTARABINE
     Indication: PHILADELPHIA CHROMOSOME POSITIVE
     Route: 037
     Dates: start: 20140717, end: 20140822
  10. DEPOCYT(E) (CYTARABINE) LIPOSOME INJECTABLE SUSPENSION, MG [Suspect]
     Active Substance: CYTARABINE
     Indication: PROPHYLACTIC CHEMOTHERAPY
     Route: 037
     Dates: start: 20140717, end: 20140822
  11. ONDANSETRON [Concomitant]
     Active Substance: ONDANSETRON
  12. DICORTINEFF (FLUDROCORTISONE ACETATE, GRAMICIDIN, NEOMYCIN SULFATE) [Concomitant]
  13. VINCRISTINE (VINCRISTINE SULFATE) [Concomitant]
     Active Substance: VINCRISTINE SULFATE
  14. METHOTREXATE (METHOTREXATE SODIUM) [Concomitant]
     Active Substance: METHOTREXATE SODIUM

REACTIONS (6)
  - Vomiting [None]
  - Intracranial pressure increased [None]
  - Subdural haematoma [None]
  - Headache [None]
  - Brain midline shift [None]
  - Subdural hygroma [None]

NARRATIVE: CASE EVENT DATE: 201410
